FAERS Safety Report 8618109-5 (Version None)
Quarter: 2012Q3

REPORT INFORMATION
  Report Type: 
  Country: None (occurrence: None)
  Receive Date: 20120824
  Receipt Date: 20120426
  Transmission Date: 20120928
  Serious: No
  Sender: FDA-Public Use
  Company Number: US-ASTRAZENECA-2012SE27221

PATIENT
  Age: 45 Year
  Sex: Male
  Weight: 104.3 kg

DRUGS (2)
  1. SYMBICORT [Suspect]
     Dosage: 1 PUFF ONCE DAY (PROBABLY 80.4.5 MCG )
     Route: 055
  2. REGULAR ALBUTEROL [Concomitant]
     Indication: ASTHMA

REACTIONS (3)
  - OFF LABEL USE [None]
  - HEADACHE [None]
  - OROPHARYNGEAL PAIN [None]
